FAERS Safety Report 22066128 (Version 1)
Quarter: 2023Q1

REPORT INFORMATION
  Report Type: Spontaneous
  Country: AU (occurrence: AU)
  Receive Date: 20230306
  Receipt Date: 20230306
  Transmission Date: 20230418
  Serious: Yes (Hospitalization, Other)
  Sender: FDA-Public Use
  Company Number: AU-TAKEDA-2023TUS020966

PATIENT
  Age: 67 Year
  Sex: Male

DRUGS (4)
  1. PANTOPRAZOLE [Suspect]
     Active Substance: PANTOPRAZOLE
     Dosage: 40 MG, 1X/DAY
     Route: 048
  2. IPILIMUMAB [Suspect]
     Active Substance: IPILIMUMAB
     Dosage: UNK
     Route: 065
  3. NIVOLUMAB [Suspect]
     Active Substance: NIVOLUMAB
     Dosage: UNK
     Route: 065
  4. PROCHLORPERAZINE MALEATE [Suspect]
     Active Substance: PROCHLORPERAZINE MALEATE
     Dosage: 10 MG, 2X/DAY
     Route: 065

REACTIONS (2)
  - Hepatitis [Unknown]
  - Dermatitis [Unknown]

NARRATIVE: CASE EVENT DATE: 20210619
